FAERS Safety Report 5212336-5 (Version None)
Quarter: 2006Q4

REPORT INFORMATION
  Report Type: 
  Country: None (occurrence: None)
  Receive Date: 20061130
  Receipt Date: 20060622
  Transmission Date: 20070319
  Serious: Yes (Other)
  Sender: FDA-Public Use
  Company Number: WAES 0506USA02672

PATIENT
  Age: 80 Year
  Sex: Female
  Weight: 73.9363 kg

DRUGS (8)
  1. FOSAMAX [Suspect]
     Indication: OSTEOPOROSIS
     Dosage: SEE IMAGE
     Route: 048
     Dates: end: 20050615
  2. FOSAMAX [Suspect]
     Indication: OSTEOPOROSIS
     Dosage: SEE IMAGE
     Route: 048
     Dates: start: 19960912
  3. LASIX [Concomitant]
  4. PRAVACHOL [Concomitant]
  5. RYNATAN [Concomitant]
  6. SINGULAIR [Concomitant]
  7. CALCIUM (UNSPECIFIED) (+) VITAMI [Concomitant]
  8. POTASSIUM (UNSPECIFIED) [Concomitant]

REACTIONS (1)
  - OSTEONECROSIS [None]
